FAERS Safety Report 19507563 (Version 5)
Quarter: 2022Q2

REPORT INFORMATION
  Report Type: Spontaneous
  Country: AU (occurrence: AU)
  Receive Date: 20210708
  Receipt Date: 20220628
  Transmission Date: 20220721
  Serious: Yes (Other)
  Sender: FDA-Public Use
  Company Number: AU-GSKCCFAPAC-CASE-01252001_AE-46705

PATIENT

DRUGS (1)
  1. VENTOLIN [Suspect]
     Active Substance: ALBUTEROL SULFATE
     Indication: Product used for unknown indication
     Dosage: UNK , 100MCG 1X200D
     Route: 055

REACTIONS (5)
  - Pneumonia [Unknown]
  - Asthma [Unknown]
  - Malaise [Recovering/Resolving]
  - Wrong technique in product usage process [Unknown]
  - Product complaint [Unknown]
